FAERS Safety Report 8184445 (Version 6)
Quarter: 2016Q4

REPORT INFORMATION
  Report Type: Spontaneous
  Country: US (occurrence: US)
  Receive Date: 20111017
  Receipt Date: 20161019
  Transmission Date: 20170207
  Serious: Yes (Hospitalization, Other)
  Sender: FDA-Public Use
  Company Number: US-ASTRAZENECA-2011SE04415

PATIENT
  Age: 61 Year
  Sex: Female
  Weight: 79.4 kg

DRUGS (35)
  1. CRESTOR [Suspect]
     Active Substance: ROSUVASTATIN CALCIUM
     Indication: STENT PLACEMENT
     Route: 048
  2. CRESTOR [Suspect]
     Active Substance: ROSUVASTATIN CALCIUM
     Indication: STENT PLACEMENT
     Route: 048
     Dates: start: 2006
  3. LISINOPRIL. [Suspect]
     Active Substance: LISINOPRIL
     Indication: BLOOD PRESSURE ABNORMAL
     Route: 048
     Dates: start: 2005
  4. CRESTOR [Suspect]
     Active Substance: ROSUVASTATIN CALCIUM
     Indication: CARDIAC DISORDER
     Route: 048
  5. VITAMIN B12 [Concomitant]
     Active Substance: CYANOCOBALAMIN
     Dosage: DAILY
  6. NEXIUM [Suspect]
     Active Substance: ESOMEPRAZOLE MAGNESIUM
     Indication: ABDOMINAL DISCOMFORT
     Dosage: 40.0MG UNKNOWN
     Route: 048
     Dates: start: 2005, end: 201502
  7. COUMADIN [Suspect]
     Active Substance: WARFARIN SODIUM
     Indication: ANTICOAGULANT THERAPY
     Route: 065
  8. NEXIUM [Suspect]
     Active Substance: ESOMEPRAZOLE MAGNESIUM
     Indication: ABDOMINAL DISCOMFORT
     Dosage: 40.0MG UNKNOWN
     Route: 048
  9. NEXIUM [Suspect]
     Active Substance: ESOMEPRAZOLE MAGNESIUM
     Indication: GASTROOESOPHAGEAL REFLUX DISEASE
     Dosage: 40.0MG UNKNOWN
     Route: 048
     Dates: start: 2005, end: 201502
  10. NEXIUM [Suspect]
     Active Substance: ESOMEPRAZOLE MAGNESIUM
     Indication: ULCER
     Dosage: 40.0MG UNKNOWN
     Route: 048
     Dates: start: 2005, end: 201502
  11. CITALOPRAM [Concomitant]
     Active Substance: CITALOPRAM HYDROBROMIDE
     Indication: DEPRESSION
     Route: 048
  12. VITAMIN C [Concomitant]
     Active Substance: ASCORBIC ACID
  13. NEXIUM [Suspect]
     Active Substance: ESOMEPRAZOLE MAGNESIUM
     Indication: GASTROOESOPHAGEAL REFLUX DISEASE
     Dosage: 40.0MG UNKNOWN
     Route: 048
  14. NEXIUM [Suspect]
     Active Substance: ESOMEPRAZOLE MAGNESIUM
     Indication: GASTROOESOPHAGEAL REFLUX DISEASE
     Dosage: 40.0MG UNKNOWN
     Route: 048
     Dates: start: 2005, end: 201502
  15. CRESTOR [Suspect]
     Active Substance: ROSUVASTATIN CALCIUM
     Indication: CARDIAC DISORDER
     Route: 048
     Dates: start: 2007, end: 201502
  16. CRESTOR [Suspect]
     Active Substance: ROSUVASTATIN CALCIUM
     Indication: CARDIAC DISORDER
     Route: 048
     Dates: start: 2006
  17. ANTIBIOTICS [Concomitant]
     Active Substance: UNSPECIFIED INGREDIENT
  18. CARVEDILOL. [Concomitant]
     Active Substance: CARVEDILOL
     Indication: CARDIAC DISORDER
     Route: 048
     Dates: start: 2005
  19. VITAMIN D3 [Concomitant]
     Active Substance: CHOLECALCIFEROL
     Indication: BONE DISORDER
     Route: 048
     Dates: start: 2005
  20. FISH OIL [Concomitant]
     Active Substance: FISH OIL
     Dosage: DAILY
  21. NEXIUM [Suspect]
     Active Substance: ESOMEPRAZOLE MAGNESIUM
     Indication: ULCER
     Dosage: 40.0MG UNKNOWN
     Route: 048
  22. CRESTOR [Suspect]
     Active Substance: ROSUVASTATIN CALCIUM
     Indication: DYSLIPIDAEMIA
     Route: 048
     Dates: start: 2007, end: 201502
  23. CRESTOR [Suspect]
     Active Substance: ROSUVASTATIN CALCIUM
     Indication: STENT PLACEMENT
     Route: 048
     Dates: start: 2007, end: 201502
  24. COUMADIN [Suspect]
     Active Substance: WARFARIN SODIUM
     Indication: CARDIAC DISORDER
     Route: 065
  25. LEXAPRO [Concomitant]
     Active Substance: ESCITALOPRAM OXALATE
     Route: 048
     Dates: start: 2005
  26. NEXIUM [Suspect]
     Active Substance: ESOMEPRAZOLE MAGNESIUM
     Indication: GASTROOESOPHAGEAL REFLUX DISEASE
     Dosage: 40.0MG UNKNOWN
     Route: 048
  27. CRESTOR [Suspect]
     Active Substance: ROSUVASTATIN CALCIUM
     Indication: DYSLIPIDAEMIA
     Route: 048
  28. CRESTOR [Suspect]
     Active Substance: ROSUVASTATIN CALCIUM
     Indication: BLOOD CHOLESTEROL ABNORMAL
     Route: 048
     Dates: start: 2007, end: 201502
  29. CRESTOR [Suspect]
     Active Substance: ROSUVASTATIN CALCIUM
     Indication: BLOOD CHOLESTEROL ABNORMAL
     Route: 048
     Dates: start: 2006
  30. OMEPRAZOLE. [Suspect]
     Active Substance: OMEPRAZOLE
     Indication: GASTROINTESTINAL DISORDER
     Route: 048
  31. GEMFIBROZIL. [Concomitant]
     Active Substance: GEMFIBROZIL
     Indication: CARDIAC DISORDER
     Route: 048
     Dates: start: 2005
  32. FUROSEMIDE. [Concomitant]
     Active Substance: FUROSEMIDE
     Indication: FLUID RETENTION
     Route: 048
     Dates: start: 2005
  33. CRESTOR [Suspect]
     Active Substance: ROSUVASTATIN CALCIUM
     Indication: BLOOD CHOLESTEROL ABNORMAL
     Route: 048
  34. CRESTOR [Suspect]
     Active Substance: ROSUVASTATIN CALCIUM
     Indication: DYSLIPIDAEMIA
     Route: 048
     Dates: start: 2006
  35. POTA CHLORIDE [Concomitant]
     Indication: FLUID RETENTION
     Route: 048

REACTIONS (33)
  - Abdominal discomfort [Unknown]
  - Arthropathy [Unknown]
  - Abasia [Unknown]
  - Fall [Unknown]
  - Off label use [Unknown]
  - Product use issue [Unknown]
  - Depression [Unknown]
  - Pharyngeal polyp [Unknown]
  - Myocardial infarction [Unknown]
  - Pain [Unknown]
  - Diarrhoea [Unknown]
  - Arthritis [Unknown]
  - Musculoskeletal discomfort [Unknown]
  - Staphylococcal infection [Unknown]
  - Drug dose omission [Unknown]
  - Pyrexia [Unknown]
  - Influenza [Unknown]
  - Abdominal pain upper [Unknown]
  - Increased appetite [Unknown]
  - Gangrene [Unknown]
  - Bronchitis [Unknown]
  - Upper limb fracture [Unknown]
  - Adverse event [Unknown]
  - Immunodeficiency [Unknown]
  - Contusion [Unknown]
  - Hypertension [Unknown]
  - Weight increased [Unknown]
  - Nervousness [Unknown]
  - Ankle fracture [Unknown]
  - Infection [Unknown]
  - Blood cholesterol increased [Unknown]
  - Malaise [Unknown]
  - Stress [Unknown]

NARRATIVE: CASE EVENT DATE: 2005
